FAERS Safety Report 12251836 (Version 1)
Quarter: 2016Q2

REPORT INFORMATION
  Report Type: Spontaneous
  Country: GR (occurrence: GR)
  Receive Date: 20160411
  Receipt Date: 20160411
  Transmission Date: 20160815
  Serious: Yes (Death, Other)
  Sender: FDA-Public Use
  Company Number: GR-CIPLA LTD.-2016GR03445

PATIENT

DRUGS (4)
  1. BORTEZOMIB [Suspect]
     Active Substance: BORTEZOMIB
     Indication: NON-SMALL CELL LUNG CANCER
     Dosage: 1 MG/M2, ON DAYS 1 AND 8 (FIRST CYCLE), OF A 21-DAY TREATMENT CYCLE
     Route: 042
  2. GEMCITABINE [Suspect]
     Active Substance: GEMCITABINE\GEMCITABINE HYDROCHLORIDE
     Indication: NON-SMALL CELL LUNG CANCER
     Dosage: 1000 MG/M2, OF SECOND AND SUBSEQUENT ON DAYS 1 AND 8 REPEATED EVERY 21 DAYS,
     Route: 065
  3. BORTEZOMIB [Suspect]
     Active Substance: BORTEZOMIB
     Dosage: 1 MG/M2, ON DAYS 1 AND 8, REPEATED EVERY 21 DAYS
     Route: 065
  4. CISPLATIN. [Suspect]
     Active Substance: CISPLATIN
     Indication: NON-SMALL CELL LUNG CANCER
     Dosage: 70 MG/M2, OF SECOND AND SUBSEQUENT ON DAY 1 REPEATED EVERY 21 DAYS
     Route: 065

REACTIONS (5)
  - Pulmonary haemorrhage [Fatal]
  - Neutropenia [Unknown]
  - Thrombocytopenia [Unknown]
  - Respiratory failure [Fatal]
  - Anaemia [Unknown]
